FAERS Safety Report 5862278-7 (Version None)
Quarter: 2008Q3

REPORT INFORMATION
  Report Type: 
  Country: None (occurrence: None)
  Receive Date: 20080828
  Receipt Date: 20080819
  Transmission Date: 20090109
  Serious: Yes (Other)
  Sender: FDA-Public Use
  Company Number: TR-NOVOPROD-277351

PATIENT
  Sex: Female
  Weight: 83 kg

DRUGS (2)
  1. ACTRAPID HM PENFILL [Suspect]
     Indication: TYPE 2 DIABETES MELLITUS
     Dosage: 36 IU, QD
     Route: 058
     Dates: start: 20080218
  2. INSULATARD HM PENFILL [Suspect]
     Indication: TYPE 2 DIABETES MELLITUS
     Dosage: 24 IU, QD
     Route: 058
     Dates: start: 20080218

REACTIONS (9)
  - BLOOD GLUCOSE INCREASED [None]
  - CAESAREAN SECTION [None]
  - CUSHING'S SYNDROME [None]
  - DEXAMETHASONE SUPPRESSION TEST POSITIVE [None]
  - DRUG EXPOSURE DURING PREGNANCY [None]
  - FOETAL DISTRESS SYNDROME [None]
  - GLYCOSYLATED HAEMOGLOBIN INCREASED [None]
  - POLYHYDRAMNIOS [None]
  - PREGNANCY [None]
